FAERS Safety Report 4809648-3 (Version None)
Quarter: 2005Q4

REPORT INFORMATION
  Report Type: 
  Country: None (occurrence: None)
  Receive Date: 20051024
  Receipt Date: 20051013
  Transmission Date: 20060501
  Serious: Yes (Other)
  Sender: FDA-Public Use
  Company Number: CHPA2005US04533

PATIENT
  Age: 50 Year
  Sex: Male
  Weight: 136.1 kg

DRUGS (3)
  1. WALGREEN'S STEP 1 21MG (NCH) (NICOTINE) TRANS-THERAPEUTIC-SYSTEM [Suspect]
     Indication: SMOKING CESSATION THERAPY
     Dosage: 21 MG, QD, TRANSDERMAL
     Route: 062
     Dates: start: 20050814
  2. WALGREEN'S STEP 2 14MG (NCH)(NICOTINE) TRANS-THERAPEUTIC-SYSTEM [Suspect]
     Indication: SMOKING CESSATION THERAPY
     Dosage: 14 MG, QD, TRANSDERMAL
     Route: 062
  3. WALGREEN'S STEP 3 7MG (NCH)(NICOTINE) TRANS-THERAPEUTIC-SYSTEM [Suspect]
     Indication: SMOKING CESSATION THERAPY
     Dosage: 7 MG, QD, TRANSDERMAL
     Route: 062
     Dates: end: 20051009

REACTIONS (4)
  - ABNORMAL BEHAVIOUR [None]
  - CONCOMITANT DISEASE AGGRAVATED [None]
  - EMOTIONAL DISORDER [None]
  - IRRITABILITY [None]
